FAERS Safety Report 6084302-1 (Version None)
Quarter: 2009Q1

REPORT INFORMATION
  Report Type: 
  Country: None (occurrence: None)
  Receive Date: 20090217
  Receipt Date: 20090217
  Transmission Date: 20090719
  Serious: Yes (Hospitalization)
  Sender: FDA-Public Use
  Company Number: None

PATIENT
  Age: 40 Year
  Sex: Male
  Weight: 12.4739 kg

DRUGS (4)
  1. ERLOTINIB 100MG/ORAL DAILY [Suspect]
     Indication: NASAL SINUS CANCER
     Dosage: 100MG/ORAL DAILY
     Route: 048
     Dates: start: 20081008, end: 20090209
  2. BEVACIZUMAB 10MG/KG WEEKS 1,3,5,7 [Suspect]
     Indication: NASAL SINUS CANCER
     Dosage: 10MG/KG/IV WKS 1,3,5,7
     Route: 042
     Dates: start: 20081222, end: 20090204
  3. ACETAMINOPHEN [Concomitant]
  4. DEXAMETHASONE [Concomitant]

REACTIONS (4)
  - DEHYDRATION [None]
  - FLATULENCE [None]
  - HYPOPHAGIA [None]
  - PYREXIA [None]
